FAERS Safety Report 5470517-X (Version None)
Quarter: 2007Q3

REPORT INFORMATION
  Report Type: 
  Country: None (occurrence: None)
  Receive Date: 20070927
  Receipt Date: 20070927
  Transmission Date: 20080115
  Serious: Yes (Other)
  Sender: FDA-Public Use
  Company Number: None

PATIENT
  Age: 69 Year
  Sex: Female
  Weight: 81.6475 kg

DRUGS (1)
  1. ZOSYN [Suspect]
     Indication: DIABETIC FOOT INFECTION
     Dosage: 4.5GM Q8H IV BOLUS
     Route: 040
     Dates: start: 20070802, end: 20070824

REACTIONS (6)
  - CHILLS [None]
  - HAEMATOCRIT DECREASED [None]
  - NEUTROPHIL COUNT DECREASED [None]
  - PLATELET COUNT DECREASED [None]
  - PYREXIA [None]
  - WHITE BLOOD CELL COUNT DECREASED [None]
